FAERS Safety Report 13422249 (Version 1)
Quarter: 2017Q2

REPORT INFORMATION
  Report Type: Spontaneous
  Country: SE (occurrence: SE)
  Receive Date: 20170410
  Receipt Date: 20170410
  Transmission Date: 20170830
  Serious: Yes (Hospitalization)
  Sender: FDA-Public Use
  Company Number: SE-ORION CORPORATION ORION PHARMA-SPIR2017-0009

PATIENT
  Age: 85 Year
  Sex: Male

DRUGS (3)
  1. SPIRONOLACTONE (TRADE NAME UNKNOWN) [Suspect]
     Active Substance: SPIRONOLACTONE
     Route: 065
  2. FURIX [Suspect]
     Active Substance: FUROSEMIDE
     Route: 065
  3. METOPROLOL (TRADE NAME UNKNOWN) [Suspect]
     Active Substance: METOPROLOL
     Route: 065

REACTIONS (2)
  - Syncope [Unknown]
  - Orthostatic hypotension [Unknown]
